FAERS Safety Report 4685256-2 (Version None)
Quarter: 2005Q2

REPORT INFORMATION
  Report Type: 
  Country: None (occurrence: None)
  Receive Date: 20050531
  Receipt Date: 20050407
  Transmission Date: 20051028
  Serious: No
  Sender: FDA-Public Use
  Company Number: WAES 0504USA00951

PATIENT
  Age: 55 Year
  Sex: Female

DRUGS (2)
  1. ZETIA [Suspect]
     Indication: BLOOD CHOLESTEROL INCREASED
     Dosage: 10 MG/DAILY/PO
     Route: 048
     Dates: start: 20050301
  2. LIPITOR [Concomitant]

REACTIONS (3)
  - ABDOMINAL PAIN [None]
  - COUGH [None]
  - WEIGHT INCREASED [None]
